FAERS Safety Report 8496469-6 (Version None)
Quarter: 2012Q3

REPORT INFORMATION
  Report Type: 
  Country: None (occurrence: None)
  Receive Date: 20120709
  Receipt Date: 20120703
  Transmission Date: 20120928
  Serious: Yes (Hospitalization)
  Sender: FDA-Public Use
  Company Number: DE-TEVA-346476GER

PATIENT
  Age: 61 Year
  Sex: Female
  Weight: 80 kg

DRUGS (2)
  1. COTRIM [Suspect]
     Indication: URINARY TRACT INFECTION
     Dosage: 1 DOSAGE FORMS; SULFAMETHOXAZOLE 800 MG/TRIMETHOPRIM 160 MG
     Route: 048
     Dates: start: 20120119, end: 20120121
  2. ITRACONAZOLE [Suspect]
     Indication: TINEA PEDIS
     Route: 048

REACTIONS (2)
  - HEPATITIS CHOLESTATIC [None]
  - ACUTE HEPATIC FAILURE [None]
